FAERS Safety Report 18807586 (Version 1)
Quarter: 2021Q1

REPORT INFORMATION
  Report Type: Spontaneous
  Country: US (occurrence: US)
  Receive Date: 20210129
  Receipt Date: 20210129
  Transmission Date: 20210419
  Serious: Yes (Disabling)
  Sender: FDA-Public Use
  Company Number: None

PATIENT
  Age: 67 Year
  Sex: Male
  Weight: 85.95 kg

DRUGS (11)
  1. SPIRULINA [Concomitant]
     Active Substance: HERBALS\SPIRULINA
  2. FISH OIL [Concomitant]
     Active Substance: FISH OIL
  3. MAGNESIUM [Concomitant]
     Active Substance: MAGNESIUM
  4. MONTELUKAST [Concomitant]
     Active Substance: MONTELUKAST SODIUM
  5. DIGOXIN, GENERIC FOR DIGITEK, 125 MCG [Suspect]
     Active Substance: DIGOXIN
     Indication: SUPRAVENTRICULAR TACHYCARDIA
     Dosage: ?          QUANTITY:1 TABLET(S);?
     Route: 048
  6. TOTAL KNEE PROSTHESES(LEFT) [Concomitant]
  7. HYDROCORTISONE. [Concomitant]
     Active Substance: HYDROCORTISONE
  8. MEN^S OVER 55 MULTI?VITAMIN [Concomitant]
  9. SILUDOSIN [Concomitant]
  10. PROSTRATE FORMULA [Concomitant]
  11. METOPROLOL HCL [Concomitant]

REACTIONS (2)
  - Musculoskeletal chest pain [None]
  - Neck pain [None]

NARRATIVE: CASE EVENT DATE: 20050101
